FAERS Safety Report 6686026-6 (Version None)
Quarter: 2010Q2

REPORT INFORMATION
  Report Type: 
  Country: None (occurrence: None)
  Receive Date: 20100414
  Receipt Date: 20100401
  Transmission Date: 20101027
  Serious: Yes (Other)
  Sender: FDA-Public Use
  Company Number: ACO_00665_2010

PATIENT
  Sex: Male

DRUGS (1)
  1. ZANAFLEX [Suspect]
     Dosage: (DF)

REACTIONS (3)
  - BLOOD PRESSURE INCREASED [None]
  - DYSSTASIA [None]
  - HEADACHE [None]
